FAERS Safety Report 4416738-6 (Version None)
Quarter: 2004Q3

REPORT INFORMATION
  Report Type: 
  Country: None (occurrence: None)
  Receive Date: 20040802
  Receipt Date: 20040713
  Transmission Date: 20050211
  Serious: Yes (Hospitalization)
  Sender: FDA-Public Use
  Company Number: FR 2004 0050

PATIENT
  Age: 46 Year
  Sex: Male

DRUGS (1)
  1. DOTAREM MEGLUMINE GADOTERATE (DOTAREM) [Suspect]
     Indication: NUCLEAR MAGNETIC RESONANCE IMAGING
     Dosage: 15 ML PER DAY
     Route: 042
     Dates: start: 20040619, end: 20040619

REACTIONS (6)
  - ANAPHYLACTIC SHOCK [None]
  - HYPOTENSION [None]
  - LOCAL SWELLING [None]
  - LOSS OF CONSCIOUSNESS [None]
  - SWELLING FACE [None]
  - URTICARIA GENERALISED [None]
